FAERS Safety Report 25404805 (Version 3)
Quarter: 2025Q2

REPORT INFORMATION
  Report Type: Spontaneous
  Country: US (occurrence: US)
  Receive Date: 20250606
  Receipt Date: 20250627
  Transmission Date: 20250716
  Serious: No
  Sender: BAUSCH AND LOMB
  Company Number: US-BAUSCHBL-2025BNL009768

PATIENT
  Age: 90 Year
  Sex: Female
  Weight: 53.97 kg

DRUGS (1)
  1. XIIDRA [Suspect]
     Active Substance: LIFITEGRAST
     Indication: Dry eye
     Dosage: STARTED 1 MONTH AGO
     Route: 047
     Dates: start: 202505

REACTIONS (7)
  - Visual impairment [Not Recovered/Not Resolved]
  - Eye irritation [Not Recovered/Not Resolved]
  - Product dose omission in error [Unknown]
  - Product delivery mechanism issue [Unknown]
  - Product container issue [Unknown]
  - Product complaint [Unknown]
  - Product use complaint [Unknown]

NARRATIVE: CASE EVENT DATE: 20250101
